FAERS Safety Report 16410928 (Version 1)
Quarter: 2019Q3

REPORT INFORMATION
  Report Type: Spontaneous
  Country: US (occurrence: US)
  Receive Date: 20190608
  Receipt Date: 20190608
  Transmission Date: 20191004
  Serious: Yes (Disabling, Other)
  Sender: FDA-Public Use
  Company Number: None

PATIENT
  Age: 65 Year
  Sex: Female
  Weight: 50.4 kg

DRUGS (4)
  1. CBD OILS [Concomitant]
  2. MULTIVITAMIN [Concomitant]
     Active Substance: VITAMINS
  3. FLAXSEED [Concomitant]
     Active Substance: FLAX SEED
  4. NUCYNTA [Suspect]
     Active Substance: TAPENTADOL HYDROCHLORIDE
     Indication: THERAPY CHANGE
     Dosage: ?          QUANTITY:1 TABLET(S);?
     Route: 048
     Dates: start: 20181118, end: 20181120

REACTIONS (14)
  - Insomnia [None]
  - Pelvic pain [None]
  - Body temperature fluctuation [None]
  - Hyperhidrosis [None]
  - Upper-airway cough syndrome [None]
  - Anxiety [None]
  - Irritable bowel syndrome [None]
  - Abnormal loss of weight [None]
  - Loss of personal independence in daily activities [None]
  - Alopecia [None]
  - Inadequate analgesia [None]
  - Headache [None]
  - Depression [None]
  - Asthenia [None]

NARRATIVE: CASE EVENT DATE: 20181119
